FAERS Safety Report 12517085 (Version 3)
Quarter: 2016Q3

REPORT INFORMATION
  Report Type: Spontaneous
  Country: US (occurrence: US)
  Receive Date: 20160630
  Receipt Date: 20160825
  Transmission Date: 20161109
  Serious: No
  Sender: FDA-Public Use
  Company Number: US-PFIZER INC-2016295251

PATIENT
  Age: 83 Year
  Sex: Female

DRUGS (2)
  1. GABAPENTIN. [Suspect]
     Active Substance: GABAPENTIN
     Indication: NEURALGIA
     Dosage: 900 MG, UNK
     Dates: start: 2006
  2. GABAPENTIN. [Suspect]
     Active Substance: GABAPENTIN
     Indication: PSORIASIS
     Dosage: 900 MG, UNK
     Dates: start: 1998

REACTIONS (2)
  - Product use issue [Unknown]
  - Peripheral swelling [Unknown]

NARRATIVE: CASE EVENT DATE: 1998
